FAERS Safety Report 4714887-6 (Version None)
Quarter: 2005Q3

REPORT INFORMATION
  Report Type: 
  Country: None (occurrence: None)
  Receive Date: 20050712
  Receipt Date: 20050630
  Transmission Date: 20060218
  Serious: Yes (Hospitalization)
  Sender: FDA-Public Use
  Company Number: HQWYE952301JUL05

PATIENT
  Age: 78 Year
  Sex: Male

DRUGS (7)
  1. CORDARONE [Suspect]
     Indication: ATRIAL FIBRILLATION
     Dosage: 200 MG 1X PER 1 DAY, ORAL
     Route: 048
     Dates: start: 20050110
  2. AUGMENTIN [Suspect]
     Indication: LUNG DISORDER
     Dosage: 1 G 3X PER 1 DAY, ORAL
     Route: 048
     Dates: start: 20050110, end: 20050120
  3. INNOHEP [Suspect]
     Dosage: 18 KIU 1X PER 1 DAY, SC
     Route: 058
     Dates: start: 20050110
  4. PREVISCAN (FLUINDIONE, ) [Suspect]
     Dosage: 20 MG 1X PER 1 DAY, ORAL
     Route: 048
     Dates: end: 20050125
  5. ATROVENT [Concomitant]
  6. FLIXOTIDE (FLUTICASONE PROPIONATE) [Concomitant]
  7. ACTRAPID HUMAN (INSULIN HUMAN) [Concomitant]

REACTIONS (3)
  - CARDIAC TAMPONADE [None]
  - DRUG INTERACTION [None]
  - INTERNATIONAL NORMALISED RATIO INCREASED [None]
